FAERS Safety Report 11702440 (Version 1)
Quarter: 2015Q4

REPORT INFORMATION
  Report Type: Report from Study
  Country: MW (occurrence: MW)
  Receive Date: 20151105
  Receipt Date: 20151105
  Transmission Date: 20160304
  Serious: Yes (Hospitalization, Other)
  Sender: FDA-Public Use
  Company Number: MW-BRISTOL-MYERS SQUIBB COMPANY-BMS-2015-074328

PATIENT
  Age: 31 Year
  Sex: Male

DRUGS (2)
  1. ETOPOSIDE. [Suspect]
     Active Substance: ETOPOSIDE
     Indication: KAPOSI^S SARCOMA AIDS RELATED
     Dosage: 100 MG, BID
     Route: 048
     Dates: start: 20150527, end: 20150916
  2. ATRIPLA [Concomitant]
     Active Substance: EFAVIRENZ\EMTRICITABINE\TENOFOVIR DISOPROXIL FUMARATE
     Indication: HIV INFECTION
     Dosage: UNK, QD
     Route: 048
     Dates: end: 20151020

REACTIONS (2)
  - Bacterial sepsis [Not Recovered/Not Resolved]
  - Renal failure [Unknown]

NARRATIVE: CASE EVENT DATE: 20151021
